FAERS Safety Report 7743612-X (Version None)
Quarter: 2011Q3

REPORT INFORMATION
  Report Type: 
  Country: None (occurrence: None)
  Receive Date: 20110912
  Receipt Date: 20110829
  Transmission Date: 20111222
  Serious: Yes (Hospitalization, Other)
  Sender: FDA-Public Use
  Company Number: US-UCBSA-038705

PATIENT
  Sex: Female
  Weight: 82.3 kg

DRUGS (5)
  1. LEVETIRACETAM [Concomitant]
     Indication: EPILEPSY
     Dosage: 1500 MG
     Route: 048
     Dates: start: 20110307
  2. LACOSAMIDE [Suspect]
     Indication: IDIOPATHIC GENERALISED EPILEPSY
     Dosage: PREVIOUS DOSAGE 100 MG, 200 MG, 300 MG
     Route: 048
     Dates: start: 20110718
  3. METRONIDAZOLE [Concomitant]
     Indication: VAGINAL DISCHARGE
     Route: 048
     Dates: start: 20110709
  4. TOPIRAMATE [Concomitant]
     Indication: EPILEPSY
     Route: 048
     Dates: start: 20110330
  5. ACETAMINOPHEN [Concomitant]
     Indication: HEADACHE
     Dosage: AS NECESSARY
     Route: 048
     Dates: start: 19980101

REACTIONS (1)
  - PETIT MAL EPILEPSY [None]
